FAERS Safety Report 9302565 (Version 1)
Quarter: 2013Q2

REPORT INFORMATION
  Report Type: Report from Study
  Country: US (occurrence: None)
  Receive Date: 20130516
  Receipt Date: 20130516
  Transmission Date: 20140414
  Serious: Yes (Hospitalization)
  Sender: FDA-Public Use
  Company Number: ACO_35971_2013

PATIENT
  Age: 70 Year
  Sex: Female

DRUGS (10)
  1. AMPYRA (DALFAMPRIDINE) TABLET, 10MG [Suspect]
     Indication: MULTIPLE SCLEROSIS
     Route: 048
     Dates: start: 20110210
  2. AMPYRA (DALFAMPRIDINE) TABLET, 10MG [Suspect]
     Indication: GAIT DISTURBANCE
     Route: 048
     Dates: start: 20110210
  3. AMIODIPINE (AMLODIPINE) [Concomitant]
  4. LOSARTAN (LOSARTAN) [Concomitant]
  5. CARVEDILOL (CARVEDILOL) [Concomitant]
  6. FLUOXETINE (FLUOXETINE) [Concomitant]
  7. VITAMIN B12 (COBAMAMIDE) [Concomitant]
  8. SIMVASTATIN (SIMVASTATIN) [Concomitant]
  9. MODAFINIL (MODAFINIL) [Concomitant]
  10. CARBAMAZEPINE (CARBAMAZEPINE) [Concomitant]

REACTIONS (1)
  - Aneurysm [None]
